FAERS Safety Report 20612265 (Version 1)
Quarter: 2022Q1

REPORT INFORMATION
  Report Type: Spontaneous
  Country: US (occurrence: None)
  Receive Date: 20220318
  Receipt Date: 20220318
  Transmission Date: 20220423
  Serious: Yes (unspecified)
  Sender: FDA-Public Use
  Company Number: None

PATIENT
  Age: 71 Year
  Sex: Female
  Weight: 54.9 kg

DRUGS (8)
  1. PEG 3350 [Suspect]
     Active Substance: POLYETHYLENE GLYCOL 3350
     Indication: Bowel preparation
     Dosage: OTHER QUANTITY : 1 4 LITERS;?FREQUENCY : EVERY 6 HOURS;?
     Route: 048
     Dates: start: 20220315, end: 20220315
  2. PRAVASTATIN SODIUM [Concomitant]
     Active Substance: PRAVASTATIN SODIUM
  3. ASPIRIN [Concomitant]
     Active Substance: ASPIRIN
  4. MINERALS\VITAMINS [Concomitant]
     Active Substance: MINERALS\VITAMINS
  5. MAGNESIUM [Concomitant]
     Active Substance: MAGNESIUM
  6. COENZYME Q10 [Concomitant]
     Active Substance: DIETARY SUPPLEMENT\UBIDECARENONE
  7. BIOTIN [Concomitant]
     Active Substance: BIOTIN
  8. Chromium Picoli [Concomitant]

REACTIONS (8)
  - Vomiting projectile [None]
  - Nausea [None]
  - Headache [None]
  - Abdominal discomfort [None]
  - Haematemesis [None]
  - Dizziness [None]
  - Asthenia [None]
  - Abdominal distension [None]

NARRATIVE: CASE EVENT DATE: 20220315
